FAERS Safety Report 5067866-6 (Version None)
Quarter: 2006Q3

REPORT INFORMATION
  Report Type: 
  Country: None (occurrence: None)
  Receive Date: 20060717
  Receipt Date: 20060427
  Transmission Date: 20061208
  Serious: Yes (Hospitalization, Disabling, Other)
  Sender: FDA-Public Use
  Company Number: 2006000920

PATIENT
  Age: 63 Year
  Sex: Male

DRUGS (7)
  1. TARCEVA [Suspect]
     Indication: PANCREATIC CARCINOMA
     Dosage: 100 MG (QD), ORAL
     Route: 048
     Dates: end: 20060427
  2. GEMZAR [Suspect]
     Indication: PANCREATIC CARCINOMA
     Dosage: Q WEEK
     Dates: start: 20060201
  3. NEXIUM [Concomitant]
  4. CARAFATE [Concomitant]
  5. LD-ASA [Concomitant]
  6. ATIVAN [Concomitant]
  7. VICODIN [Concomitant]

REACTIONS (2)
  - CEREBROVASCULAR ACCIDENT [None]
  - THROMBOCYTOPENIA [None]
